FAERS Safety Report 19099076 (Version 2)
Quarter: 2022Q4

REPORT INFORMATION
  Report Type: Report from Study
  Country: US (occurrence: US)
  Receive Date: 20210406
  Receipt Date: 20221006
  Transmission Date: 20230112
  Serious: Yes (Death, Other)
  Sender: FDA-Public Use
  Company Number: US-GILEAD-2021-0524036

PATIENT
  Age: 43 Year
  Sex: Female
  Weight: 52.154 kg

DRUGS (1)
  1. AMBRISENTAN [Suspect]
     Active Substance: AMBRISENTAN
     Indication: Pulmonary hypertension
     Dosage: 10 MG, UNK
     Route: 048
     Dates: start: 20160307, end: 20210312

REACTIONS (1)
  - Death [Fatal]
